FAERS Safety Report 7396212-8 (Version None)
Quarter: 2011Q2

REPORT INFORMATION
  Report Type: 
  Country: None (occurrence: None)
  Receive Date: 20110406
  Receipt Date: 20110329
  Transmission Date: 20111010
  Serious: Yes (Other)
  Sender: FDA-Public Use
  Company Number: JP-ASTELLAS-2011JP002259

PATIENT
  Age: 65 Year
  Sex: Female
  Weight: 44.9 kg

DRUGS (8)
  1. KEILASE [Concomitant]
     Route: 065
  2. TANNALBIN [Concomitant]
     Route: 065
  3. VESICARE [Suspect]
     Indication: NEUROGENIC BLADDER
     Dosage: 10 MG, UNKNOWN/D
     Route: 048
     Dates: start: 20100928, end: 20110118
  4. TOFRANIL [Suspect]
     Dosage: 10 MG, UNKNOWN/D
     Route: 048
     Dates: start: 20101113, end: 20110117
  5. KENTAN [Concomitant]
     Route: 065
  6. MUCOSTA [Concomitant]
     Route: 065
  7. PLETAL [Concomitant]
     Route: 065
  8. LIPITOR [Concomitant]
     Indication: HYPERLIPIDAEMIA
     Route: 048

REACTIONS (1)
  - LIVER DISORDER [None]
